FAERS Safety Report 6511562-2 (Version None)
Quarter: 2009Q4

REPORT INFORMATION
  Report Type: 
  Country: None (occurrence: None)
  Receive Date: 20091222
  Receipt Date: 20090421
  Transmission Date: 20100525
  Serious: No
  Sender: FDA-Public Use
  Company Number: US-ASTRAZENECA-2009UW10059

PATIENT
  Age: 26106 Day
  Sex: Female
  Weight: 64 kg

DRUGS (11)
  1. CRESTOR [Suspect]
     Route: 048
     Dates: start: 20090201
  2. RESTORIL [Concomitant]
  3. CYMBALTA [Concomitant]
     Indication: NEUROPATHY PERIPHERAL
  4. ASPIRIN [Concomitant]
     Indication: CARDIAC DISORDER
  5. FOLIC ACID [Concomitant]
  6. NITROGLYCERIN [Concomitant]
  7. ZETIA [Concomitant]
  8. NASONEX [Concomitant]
     Indication: MULTIPLE ALLERGIES
  9. XANAX [Concomitant]
  10. IMDUR [Concomitant]
  11. SYNTHROID [Concomitant]
     Indication: THYROID DISORDER

REACTIONS (2)
  - MUSCULAR WEAKNESS [None]
  - PAIN [None]
